FAERS Safety Report 17274482 (Version 1)
Quarter: 2020Q1

REPORT INFORMATION
  Report Type: Spontaneous
  Country: US (occurrence: US)
  Receive Date: 20200115
  Receipt Date: 20200115
  Transmission Date: 20200409
  Serious: No
  Sender: FDA-Public Use
  Company Number: US-SA-2020SA009130

PATIENT
  Age: 27 Year
  Sex: Female
  Weight: 97.5 kg

DRUGS (11)
  1. FABRAZYME [Suspect]
     Active Substance: AGALSIDASE BETA
     Indication: FABRY^S DISEASE
     Dosage: 1.025 MG/KG, QOW
     Route: 042
     Dates: start: 20161005
  2. PROPRANOLOL HCL [Concomitant]
     Active Substance: PROPRANOLOL HYDROCHLORIDE
     Dosage: 1 DF, BID
     Route: 048
     Dates: start: 20190910
  3. GALAFOLD [Suspect]
     Active Substance: MIGALASTAT HYDROCHLORIDE
     Dosage: 123 MG, QOD
     Route: 048
     Dates: start: 20190913
  4. TROKENDI XR [Concomitant]
     Active Substance: TOPIRAMATE
     Dosage: 1 DF, QD
     Route: 048
     Dates: start: 20190910
  5. CITALOPRAM [Concomitant]
     Active Substance: CITALOPRAM HYDROBROMIDE
     Dosage: 1 DF, QD
     Route: 048
     Dates: start: 20161003
  6. LORAZEPAM. [Concomitant]
     Active Substance: LORAZEPAM
     Dosage: 1 DF, QD
     Route: 048
     Dates: start: 20161003
  7. GLIPIZIDE. [Concomitant]
     Active Substance: GLIPIZIDE
     Dosage: 1 DF, QD
     Route: 048
     Dates: start: 20190910
  8. ZYRTEC [Concomitant]
     Active Substance: CETIRIZINE HYDROCHLORIDE
     Dosage: 1 DF, AS DIRECTED
     Route: 048
     Dates: start: 20190910
  9. TOUJEO MAX [Concomitant]
     Active Substance: INSULIN GLARGINE
     Dosage: 5 U, QD
     Route: 058
     Dates: start: 20190910
  10. LOSARTAN POTASSIUM. [Concomitant]
     Active Substance: LOSARTAN POTASSIUM
     Dosage: 1 DF, QD
     Route: 048
     Dates: start: 20190910
  11. CHLORPROMAZINE HCL [Concomitant]
     Active Substance: CHLORPROMAZINE HYDROCHLORIDE
     Dosage: 1 DF, QD
     Route: 048
     Dates: start: 20161003

REACTIONS (4)
  - Heart rate increased [Unknown]
  - Abdominal pain [Unknown]
  - Headache [Unknown]
  - Nausea [Unknown]
